FAERS Safety Report 20650723 (Version 3)
Quarter: 2022Q2

REPORT INFORMATION
  Report Type: Spontaneous
  Country: GB (occurrence: GB)
  Receive Date: 20220329
  Receipt Date: 20220420
  Transmission Date: 20220721
  Serious: Yes (Hospitalization)
  Sender: FDA-Public Use
  Company Number: GB-009507513-2203GBR002204

PATIENT
  Age: 52 Year
  Sex: Male
  Weight: 68 kg

DRUGS (11)
  1. KEYTRUDA [Suspect]
     Active Substance: PEMBROLIZUMAB
     Indication: Rectal adenocarcinoma
     Dosage: 200 MILLIGRAM, 3W
     Route: 042
     Dates: start: 20211013, end: 20220215
  2. KEYTRUDA [Suspect]
     Active Substance: PEMBROLIZUMAB
     Dosage: 200 MILLIGRAM, 3W
     Route: 042
     Dates: start: 20220303
  3. CEBPA-51 FREE ACID [Suspect]
     Active Substance: CEBPA-51 FREE ACID
     Indication: Rectal adenocarcinoma
     Dosage: 130 MILLIGRAM/SQ. METER, WEEKLY
     Route: 042
     Dates: start: 20211012, end: 20220215
  4. CEBPA-51 FREE ACID [Suspect]
     Active Substance: CEBPA-51 FREE ACID
     Dosage: 130 MILLIGRAM/SQ. METER, WEEKLY
     Route: 042
     Dates: start: 20220302
  5. BUDESONIDE\FORMOTEROL [Concomitant]
     Active Substance: BUDESONIDE\FORMOTEROL
     Dosage: UNK
     Dates: start: 20171213
  6. TIOTROPIUM [Concomitant]
     Active Substance: TIOTROPIUM
     Dosage: UNK
     Dates: start: 20171213
  7. ALBUTEROL [Concomitant]
     Active Substance: ALBUTEROL
     Dosage: UNK
     Dates: start: 19990712
  8. CLOTRIMAZOLE 3 [Concomitant]
     Dosage: UNK
     Dates: start: 202103
  9. DEXAMETHASONE [Concomitant]
     Active Substance: DEXAMETHASONE
     Dosage: UNK
     Dates: start: 20211012
  10. FAMOTIDINE [Concomitant]
     Active Substance: FAMOTIDINE
     Indication: Premedication
  11. CETIRIZINE [Concomitant]
     Active Substance: CETIRIZINE HYDROCHLORIDE
     Indication: Premedication

REACTIONS (22)
  - COVID-19 [Recovered/Resolved]
  - Pelvic pain [Not Recovered/Not Resolved]
  - Dysuria [Not Recovered/Not Resolved]
  - Cough [Not Recovered/Not Resolved]
  - Lethargy [Not Recovered/Not Resolved]
  - Productive cough [Recovered/Resolved]
  - Oedema peripheral [Not Recovered/Not Resolved]
  - Weight decreased [Not Recovered/Not Resolved]
  - Urinary tract infection [Recovered/Resolved]
  - Urinary tract infection [Recovered/Resolved]
  - Fungal skin infection [Not Recovered/Not Resolved]
  - Fatigue [Not Recovered/Not Resolved]
  - Anaemia [Recovered/Resolved]
  - Anaemia [Not Recovered/Not Resolved]
  - Blood pressure abnormal [Unknown]
  - Eosinophil count increased [Unknown]
  - Haemoglobin decreased [Unknown]
  - Heart rate abnormal [Unknown]
  - International normalised ratio decreased [Unknown]
  - Monocyte count increased [Unknown]
  - Red blood cell count decreased [Unknown]
  - Red blood cell sedimentation rate increased [Unknown]

NARRATIVE: CASE EVENT DATE: 20211013
